FAERS Safety Report 6494187-7 (Version None)
Quarter: 2009Q4

REPORT INFORMATION
  Report Type: 
  Country: None (occurrence: None)
  Receive Date: 20091214
  Receipt Date: 20090310
  Transmission Date: 20100525
  Serious: No
  Sender: FDA-Public Use
  Company Number: US-BRISTOL-MYERS SQUIBB COMPANY-14474803

PATIENT
  Age: 30 Year
  Sex: Male

DRUGS (3)
  1. ABILIFY [Suspect]
     Indication: SCHIZOPHRENIA
     Dosage: STARTED AROUND NOV OR DEC08
     Route: 048
     Dates: start: 20081101
  2. COGENTIN [Concomitant]
     Route: 048
     Dates: start: 20030101
  3. LORAZEPAM [Concomitant]
     Route: 048
     Dates: start: 20050501

REACTIONS (3)
  - INCORRECT DOSE ADMINISTERED [None]
  - NO ADVERSE EVENT [None]
  - OVERDOSE [None]
